FAERS Safety Report 15458755 (Version 1)
Quarter: 2018Q4

REPORT INFORMATION
  Report Type: Other
  Country: IT (occurrence: IT)
  Receive Date: 20181003
  Receipt Date: 20181003
  Transmission Date: 20190204
  Serious: Yes (Life-Threatening, Other)
  Sender: FDA-Public Use
  Company Number: IT-APOTEX-2018AP021591

PATIENT
  Age: 10 Year
  Sex: Male
  Weight: 17 kg

DRUGS (5)
  1. DINTOINA [Suspect]
     Active Substance: PHENYTOIN SODIUM
     Indication: EPILEPSY
     Dosage: 150 MG, UNK, DAILY
     Route: 048
  2. RIVOTRIL [Suspect]
     Active Substance: CLONAZEPAM
     Indication: EPILEPSY
     Dosage: 12 GTT, UNK, DAILY
     Route: 048
     Dates: start: 20180123
  3. FRISIUM [Suspect]
     Active Substance: CLOBAZAM
     Indication: EPILEPSY
     Dosage: 15 MG, DAILY,UNK
     Route: 048
  4. LUMINALE                           /00023201/ [Suspect]
     Active Substance: PHENOBARBITAL
     Indication: EPILEPSY
     Dosage: 450 MG, IN TOTAL
     Route: 065
  5. TOPIRAMATE. [Suspect]
     Active Substance: TOPIRAMATE
     Indication: EPILEPSY
     Dosage: 100 MG DAILY
     Route: 048

REACTIONS (7)
  - Poor feeding infant [Recovering/Resolving]
  - Hypotonia [Recovering/Resolving]
  - Hypocalcaemia [Recovering/Resolving]
  - Hypernatraemia [Recovering/Resolving]
  - Sopor [Recovering/Resolving]
  - Hyperchloraemia [Recovering/Resolving]
  - Hypokalaemia [Recovering/Resolving]

NARRATIVE: CASE EVENT DATE: 20180124
